FAERS Safety Report 4870217-0 (Version None)
Quarter: 2005Q4

REPORT INFORMATION
  Report Type: 
  Country: None (occurrence: None)
  Receive Date: 20051228
  Receipt Date: 20051212
  Transmission Date: 20060501
  Serious: Yes (Death, Life-Threatening, Hospitalization)
  Sender: FDA-Public Use
  Company Number: JP_040402959

PATIENT
  Age: 67 Year
  Sex: Male
  Weight: 57 kg

DRUGS (7)
  1. GEMZAR [Suspect]
     Indication: NON-SMALL CELL LUNG CANCER STAGE IIIB
     Dosage: 1300 MG, OTHER; INTRAVENOUS
     Route: 042
     Dates: start: 20021016, end: 20021023
  2. TAXOTERE [Concomitant]
  3. PURSENNID (SENNA LEAF) [Concomitant]
  4. VOLTAREN [Concomitant]
  5. ASCORBIC ACID [Concomitant]
  6. ALINAMIN EX [Concomitant]
  7. GASTER OD (FAMOTIDINE) [Concomitant]

REACTIONS (5)
  - ERYTHEMA [None]
  - FEBRILE NEUTROPENIA [None]
  - INTERSTITIAL LUNG DISEASE [None]
  - MALIGNANT NEOPLASM PROGRESSION [None]
  - STOMATITIS [None]
